FAERS Safety Report 17708171 (Version 2)
Quarter: 2020Q3

REPORT INFORMATION
  Report Type: Spontaneous
  Country: DE (occurrence: DE)
  Receive Date: 20200425
  Receipt Date: 20200731
  Transmission Date: 20201102
  Serious: Yes (Other)
  Sender: FDA-Public Use
  Company Number: DE-ACCORD-179621

PATIENT
  Age: 56 Year
  Sex: Female
  Weight: 155 kg

DRUGS (2)
  1. TRASTUZUMAB. [Suspect]
     Active Substance: TRASTUZUMAB
     Indication: BREAST CANCER
     Dosage: 8MG/KG
     Route: 042
  2. PACLITAXEL/PACLITAXEL LIPOSOME [Suspect]
     Active Substance: PACLITAXEL
     Indication: BREAST CANCER
     Dosage: 80 MG/M2 MILLIGRAM(S)/SQ. METER
     Route: 042
     Dates: start: 20200306, end: 20200306

REACTIONS (4)
  - Chills [Recovered/Resolved]
  - Flushing [Recovered/Resolved]
  - Bronchospasm [Recovered/Resolved]
  - Body temperature increased [Recovered/Resolved]

NARRATIVE: CASE EVENT DATE: 20200306
